FAERS Safety Report 17694001 (Version 1)
Quarter: 2020Q2

REPORT INFORMATION
  Report Type: Spontaneous
  Country: AU (occurrence: AU)
  Receive Date: 20200422
  Receipt Date: 20200422
  Transmission Date: 20200714
  Serious: Yes (Other)
  Sender: FDA-Public Use
  Company Number: AU-ASCEND THERAPEUTICS US, LLC-2083051

PATIENT
  Age: 56 Year
  Sex: Female

DRUGS (2)
  1. GILENYA [Suspect]
     Active Substance: FINGOLIMOD HYDROCHLORIDE
  2. ESTROGEL [Suspect]
     Active Substance: ESTRADIOL
     Indication: PRODUCT USED FOR UNKNOWN INDICATION

REACTIONS (9)
  - Lymphogranuloma venereum [Unknown]
  - Granuloma [Unknown]
  - Vaginal infection [Unknown]
  - Lymphopenia [Unknown]
  - Granulomatous lymphadenitis [Unknown]
  - Neutropenia [Unknown]
  - Cholelithiasis [Unknown]
  - Urinary incontinence [Unknown]
  - Abdominal pain [Unknown]

NARRATIVE: CASE EVENT DATE: 20191213
